FAERS Safety Report 9380868 (Version 4)
Quarter: 2014Q2

REPORT INFORMATION
  Report Type: Report from Study
  Country: BR (occurrence: BR)
  Receive Date: 20130703
  Receipt Date: 20140630
  Transmission Date: 20141212
  Serious: Yes (Death)
  Sender: FDA-Public Use
  Company Number: BR-009507513-1306BRA014694

PATIENT
  Age: 71 Year
  Sex: Male
  Weight: 80 kg

DRUGS (4)
  1. EZETIMIBE (+) SIMVASTATIN [Suspect]
     Indication: ACUTE CORONARY SYNDROME
     Dosage: 10/40
     Route: 048
     Dates: start: 20071023
  2. ASPIRIN [Concomitant]
     Dosage: UNK
     Route: 048
     Dates: start: 20071018, end: 20130224
  3. NATRILIX [Concomitant]
     Dosage: UNK
     Route: 048
     Dates: start: 20100614, end: 20130528
  4. ENALAPRIL MALEATE [Concomitant]
     Dosage: UNK
     Route: 048
     Dates: start: 20071025, end: 20130528

REACTIONS (1)
  - Oesophageal carcinoma [Fatal]
